FAERS Safety Report 7710074-8 (Version None)
Quarter: 2011Q3

REPORT INFORMATION
  Report Type: 
  Country: None (occurrence: None)
  Receive Date: 20110825
  Receipt Date: 20110819
  Transmission Date: 20111222
  Serious: Yes (Hospitalization, Other)
  Sender: FDA-Public Use
  Company Number: PHHY2010ES87832

PATIENT
  Age: 67 Year
  Sex: Male

DRUGS (8)
  1. DOMPERIDONE [Concomitant]
  2. ASPIRIN [Concomitant]
  3. OMEPRAZOLE [Suspect]
     Dosage: 40 MG, QD
     Route: 065
  4. OMEPRAZOLE [Suspect]
     Indication: PROPHYLAXIS AGAINST GASTROINTESTINAL ULCER
     Dosage: 20 MG, QD
     Route: 065
     Dates: start: 20060101
  5. PANTOPRAZOLE [Concomitant]
     Dosage: 40 MG, QD
  6. MAGNESIUM [Concomitant]
     Dosage: 12 MEQ, QD
  7. FLUTICASONE W/SALMETEROL [Concomitant]
  8. LOSARTAN [Concomitant]

REACTIONS (9)
  - HYPOCALCAEMIA [None]
  - MUSCULAR WEAKNESS [None]
  - PARAESTHESIA [None]
  - HYPOMAGNESAEMIA [None]
  - TETANY [None]
  - HYPOAESTHESIA [None]
  - DYSPEPSIA [None]
  - OESOPHAGITIS [None]
  - VITAMIN D DECREASED [None]
